FAERS Safety Report 9417034 (Version 2)
Quarter: 2013Q3

REPORT INFORMATION
  Report Type: Spontaneous
  Country: DE (occurrence: DE)
  Receive Date: 20130724
  Receipt Date: 20130830
  Transmission Date: 20140515
  Serious: Yes (Other)
  Sender: FDA-Public Use
  Company Number: DE-TEVA-419920GER

PATIENT
  Age: 53 Year
  Sex: Male
  Weight: 120 kg

DRUGS (1)
  1. COPAXONE [Suspect]
     Indication: PRIMARY PROGRESSIVE MULTIPLE SCLEROSIS
     Dosage: INJECTS SINCE DIAGNOSIS

REACTIONS (4)
  - Brain abscess [Recovered/Resolved]
  - Grand mal convulsion [Recovered/Resolved]
  - Central nervous system infection [Recovered/Resolved]
  - Off label use [Unknown]
